FAERS Safety Report 22944995 (Version 4)
Quarter: 2024Q3

REPORT INFORMATION
  Report Type: Spontaneous
  Country: US (occurrence: US)
  Receive Date: 20230914
  Receipt Date: 20240830
  Transmission Date: 20241017
  Serious: No
  Sender: PFIZER
  Company Number: US-PFIZER INC-PV202300154083

PATIENT
  Age: 65 Year
  Sex: Male
  Weight: 74.84 kg

DRUGS (4)
  1. IBRANCE [Suspect]
     Active Substance: PALBOCICLIB
     Indication: Neoplasm malignant
     Dosage: 125 MG, ON 21 DAYS 7 DAYS OFF
     Dates: start: 202307
  2. IBRANCE [Suspect]
     Active Substance: PALBOCICLIB
     Dosage: 75MG TABLET FOR 21 DAYS AND 7 DAY OFF
  3. ANASTROZOLE [Concomitant]
     Active Substance: ANASTROZOLE
     Indication: Neoplasm malignant
     Dosage: UNK
  4. LUPRON [Concomitant]
     Active Substance: LEUPROLIDE ACETATE
     Indication: Neoplasm malignant
     Dosage: UNK, MONTHLY(LUPRON SHOT FROM EVERY MONTH EVERY 30 DAYS)

REACTIONS (3)
  - Feeling abnormal [Unknown]
  - Bronchitis [Unknown]
  - Product dose omission issue [Unknown]
